FAERS Safety Report 7347058-8 (Version None)
Quarter: 2011Q1

REPORT INFORMATION
  Report Type: 
  Country: None (occurrence: None)
  Receive Date: 20110309
  Receipt Date: 20110309
  Transmission Date: 20110831
  Serious: Yes (Other)
  Sender: FDA-Public Use
  Company Number: None

PATIENT
  Age: 68 Year
  Sex: Female
  Weight: 74.8435 kg

DRUGS (1)
  1. TRIAD GROUP ALCOHOL SWABS ISOPROPYL ALCOHOL 70% V/V TRIAD [Suspect]
     Indication: RHEUMATOID ARTHRITIS
     Dosage: INJECTION ONCE WEEKLY SQ
     Route: 058
     Dates: start: 20080101, end: 20110227

REACTIONS (3)
  - INJECTION SITE RASH [None]
  - RASH MACULO-PAPULAR [None]
  - PRODUCT QUALITY ISSUE [None]
